FAERS Safety Report 20674555 (Version 5)
Quarter: 2023Q2

REPORT INFORMATION
  Report Type: Report from Study
  Country: CA (occurrence: CA)
  Receive Date: 20220405
  Receipt Date: 20230623
  Transmission Date: 20230722
  Serious: Yes (Other)
  Sender: FDA-Public Use
  Company Number: CA-NOVARTISPH-NVSC2022CA075100

PATIENT
  Age: 67 Year
  Sex: Female

DRUGS (27)
  1. LEFLUNOMIDE [Suspect]
     Active Substance: LEFLUNOMIDE
     Indication: Product used for unknown indication
     Dosage: 20 MG, QD (1 EVERY 1 DAYS)
     Route: 048
  2. ROSUVASTATIN CALCIUM [Suspect]
     Active Substance: ROSUVASTATIN CALCIUM
     Indication: Product used for unknown indication
     Dosage: 1 DOSAGE FORM, QD, 1 EVERY 1 DAY
     Route: 048
  3. ESOMEPRAZOLE MAGNESIUM [Suspect]
     Active Substance: ESOMEPRAZOLE MAGNESIUM
     Indication: Product used for unknown indication
     Dosage: 40 MG, QD
     Route: 048
  4. PREGABALIN [Suspect]
     Active Substance: PREGABALIN
     Indication: Product used for unknown indication
     Dosage: 73 MG, TID (3 EVERY 1 DAYS)
     Route: 048
  5. PREGABALIN [Suspect]
     Active Substance: PREGABALIN
     Dosage: 73 MG, QD (1 EVERY 1 DAYS)
     Route: 048
  6. PRAMIPEXOLE [Suspect]
     Active Substance: PRAMIPEXOLE
     Indication: Product used for unknown indication
     Dosage: 1 DOSAGE FORM, QD
     Route: 048
  7. PRAMIPEXOLE DIHYDROCHLORIDE [Suspect]
     Active Substance: PRAMIPEXOLE DIHYDROCHLORIDE
     Indication: Product used for unknown indication
     Dosage: 1 DOSAGE FORM, QD (1 EVERY 1 DAYS)
     Route: 048
  8. MAGNESIUM [Suspect]
     Active Substance: MAGNESIUM
     Indication: Product used for unknown indication
     Dosage: UNK
     Route: 065
  9. RIVAROXABAN [Suspect]
     Active Substance: RIVAROXABAN
     Indication: Product used for unknown indication
     Dosage: 10 MG, QD (1 EVERY 1 DAYS)
     Route: 048
  10. CALCIUM [Suspect]
     Active Substance: CALCIUM
     Indication: Product used for unknown indication
     Dosage: 1 DOSAGE FORM
     Route: 048
  11. MAGNESIUM CITRATE [Suspect]
     Active Substance: MAGNESIUM CITRATE
     Indication: Product used for unknown indication
     Dosage: UNK
     Route: 065
  12. CALCIUM CARBONATE [Suspect]
     Active Substance: CALCIUM CARBONATE
     Indication: Product used for unknown indication
     Dosage: 1 DOSAGE FORM
     Route: 048
  13. SIMPONI [Concomitant]
     Active Substance: GOLIMUMAB
     Indication: Product used for unknown indication
     Dosage: UNK (SOLUTION SUBCUTANEOUS)
     Route: 058
  14. BETAMETHASONE DIPROPIONATE\CALCIPOTRIENE [Concomitant]
     Active Substance: BETAMETHASONE DIPROPIONATE\CALCIPOTRIENE
     Indication: Product used for unknown indication
     Dosage: UNK
     Route: 061
  15. METHOTREXATE [Concomitant]
     Active Substance: METHOTREXATE
     Indication: Product used for unknown indication
     Dosage: UNK
     Route: 048
  16. METFORMIN HYDROCHLORIDE [Concomitant]
     Active Substance: METFORMIN HYDROCHLORIDE
     Indication: Product used for unknown indication
     Dosage: UNK, QD (1 EVERY 1 DAYS)
     Route: 048
  17. MOCLOBEMIDE [Concomitant]
     Active Substance: MOCLOBEMIDE
     Indication: Product used for unknown indication
     Dosage: 1 DOSAGE FORM, BID
     Route: 048
  18. MOCLOBEMIDE [Concomitant]
     Active Substance: MOCLOBEMIDE
     Dosage: 2 DOSAGE FORM, QD, (1 EVERY 1 DAYS)
     Route: 048
  19. MOCLOBEMIDE [Concomitant]
     Active Substance: MOCLOBEMIDE
     Dosage: 3 DOSAGE FORM, QD (1 EVERY 1 DAYS)
     Route: 048
  20. MOCLOBEMIDE [Concomitant]
     Active Substance: MOCLOBEMIDE
     Dosage: 2 DOSAGE FORM, QD (2 EVERY 1 DAYS)
     Route: 048
  21. DIVALPROEX SODIUM [Concomitant]
     Active Substance: DIVALPROEX SODIUM
     Indication: Product used for unknown indication
     Dosage: UNK UNK, QD
     Route: 048
  22. HYDROCHLOROTHIAZIDE\TRIAMTERENE [Concomitant]
     Active Substance: HYDROCHLOROTHIAZIDE\TRIAMTERENE
     Indication: Product used for unknown indication
     Dosage: 1 DOSAGE FORM, QD (1 EVERY 1 DAYS)
     Route: 048
  23. PROPRANOLOL HYDROCHLORIDE [Concomitant]
     Active Substance: PROPRANOLOL HYDROCHLORIDE
     Indication: Product used for unknown indication
     Dosage: 1 DOSAGE FORM, QD, (1 EVERY 1 DAYS)
     Route: 048
  24. VITAMIN D3 [Concomitant]
     Active Substance: CHOLECALCIFEROL
     Indication: Product used for unknown indication
     Dosage: UNK
     Route: 048
  25. SULFASALAZINE [Concomitant]
     Active Substance: SULFASALAZINE
     Indication: Product used for unknown indication
     Dosage: UNK, BID
     Route: 065
  26. SULFASALAZINE [Concomitant]
     Active Substance: SULFASALAZINE
     Dosage: 2 DOSAGE FORM, QD (1 EVERY 1 DAYS))
     Route: 065
  27. DIVALPROEX SODIUM [Concomitant]
     Active Substance: DIVALPROEX SODIUM
     Indication: Product used for unknown indication
     Dosage: 1 DOSAGE FORM, QD, (1 EVERY 1 DAY)
     Route: 048

REACTIONS (5)
  - Psoriatic arthropathy [Recovered/Resolved]
  - Musculoskeletal stiffness [Recovered/Resolved]
  - Tenosynovitis [Recovered/Resolved]
  - Abdominal discomfort [Recovered/Resolved]
  - Urinary tract infection [Recovered/Resolved]
